FAERS Safety Report 18090168 (Version 2)
Quarter: 2023Q2

REPORT INFORMATION
  Report Type: Report from Study
  Country: US (occurrence: US)
  Receive Date: 20200730
  Receipt Date: 20230502
  Transmission Date: 20230721
  Serious: No
  Sender: FDA-Public Use
  Company Number: US-SHIRE-US202024385

PATIENT

DRUGS (2)
  1. VELAGLUCERASE ALFA [Suspect]
     Active Substance: VELAGLUCERASE ALFA
     Indication: Gaucher^s disease type I
     Dosage: 9 DOSAGE FORM, 2/WEEK
     Route: 042
     Dates: start: 20100607
  2. VELAGLUCERASE ALFA [Suspect]
     Active Substance: VELAGLUCERASE ALFA
     Indication: Gaucher^s disease
     Dosage: UNK, Q2WEEKS
     Route: 042

REACTIONS (5)
  - Muscular weakness [Not Recovered/Not Resolved]
  - Brain fog [Not Recovered/Not Resolved]
  - Drug effect less than expected [Unknown]
  - Fatigue [Unknown]
  - Product storage error [Unknown]
